FAERS Safety Report 15569311 (Version 1)
Quarter: 2018Q4

REPORT INFORMATION
  Report Type: Spontaneous
  Country: US (occurrence: US)
  Receive Date: 20181031
  Receipt Date: 20181031
  Transmission Date: 20190205
  Serious: No
  Sender: FDA-Public Use
  Company Number: US-APOTEX-2018AP017930

PATIENT
  Sex: Female

DRUGS (3)
  1. FLUTICASONE PROPIONATE. [Suspect]
     Active Substance: FLUTICASONE PROPIONATE
     Indication: PRODUCT USED FOR UNKNOWN INDICATION
     Dosage: UNK
     Route: 065
     Dates: start: 201804, end: 201805
  2. REGULIN                            /00021802/ [Concomitant]
     Indication: PRODUCT USED FOR UNKNOWN INDICATION
     Dosage: UNK
     Route: 065
  3. PROTONIX                           /00661201/ [Concomitant]
     Active Substance: OMEPRAZOLE
     Indication: ABDOMINAL PAIN UPPER
     Dosage: UNK
     Route: 065

REACTIONS (14)
  - Rhinorrhoea [Unknown]
  - Upper respiratory tract infection [Unknown]
  - Nasal crusting [Not Recovered/Not Resolved]
  - Rhinorrhoea [Recovered/Resolved]
  - Abdominal pain upper [Unknown]
  - Dyspnoea [Unknown]
  - Recalled product administered [Unknown]
  - Nasal inflammation [Not Recovered/Not Resolved]
  - Epistaxis [Not Recovered/Not Resolved]
  - Anosmia [Unknown]
  - Pulmonary mass [Unknown]
  - Oesophagitis [Unknown]
  - Gastrointestinal hypermotility [Unknown]
  - Nasal obstruction [Unknown]
